FAERS Safety Report 10922786 (Version 1)
Quarter: 2015Q1

REPORT INFORMATION
  Report Type: Spontaneous
  Country: US (occurrence: None)
  Receive Date: 20150313
  Receipt Date: 20150313
  Transmission Date: 20150721
  Serious: Yes (Other)
  Sender: FDA-Public Use
  Company Number: TIR-04320

PATIENT
  Age: 52 Year
  Sex: Female
  Weight: 54.89 kg

DRUGS (3)
  1. TIROSINT [Suspect]
     Active Substance: LEVOTHYROXINE SODIUM
     Indication: HYPOTHYROIDISM
     Dosage: ONE 7GMCG CAPSULE. EVERY OTHER DAY AND ONE 50MCG CAPSULES EVERY OTHER DAY
     Route: 048
     Dates: start: 20150203
  2. TIROSINT [Suspect]
     Active Substance: LEVOTHYROXINE SODIUM
     Indication: HYPOTHYROIDISM
     Dosage: 112 MCG CAPSULE, ONE DOSE
     Route: 048
     Dates: start: 201412
  3. TIROSINT [Suspect]
     Active Substance: LEVOTHYROXINE SODIUM
     Indication: HYPOTHYROIDISM
     Route: 048
     Dates: start: 20150101, end: 20150205

REACTIONS (12)
  - Dizziness [None]
  - Gastrooesophageal reflux disease [None]
  - Dyspepsia [None]
  - Lethargy [None]
  - Swollen tongue [None]
  - Suicidal ideation [None]
  - Blood thyroid stimulating hormone decreased [None]
  - Hallucination [None]
  - Abdominal discomfort [None]
  - Nausea [None]
  - Feeling abnormal [None]
  - Palpitations [None]

NARRATIVE: CASE EVENT DATE: 201412
